FAERS Safety Report 21482574 (Version 1)
Quarter: 2022Q4

REPORT INFORMATION
  Report Type: Spontaneous
  Country: EG (occurrence: EG)
  Receive Date: 20221020
  Receipt Date: 20221020
  Transmission Date: 20230112
  Serious: Yes (Disabling, Other)
  Sender: FDA-Public Use
  Company Number: EG-NOVOPROD-968451

PATIENT
  Age: 35 Year
  Sex: Male

DRUGS (5)
  1. PEPZOL [SERRAPEPTASE] [Concomitant]
     Indication: Gastrointestinal disorder prophylaxis
     Dosage: 1 CAP BEFORE BREAKFAST ( STARTED FROM 2010 )
     Route: 048
     Dates: start: 2010
  2. DIGESTIN [ALUMINIUM HYDROXIDE GEL, DRIED;AMYLASE;CALCIUM CARBONATE;SCO [Concomitant]
     Indication: Gastrointestinal disorder prophylaxis
     Dosage: 3 TIMES/ DAYS BEFORE MEALS  ( STARTED FROM 2010 )
     Route: 048
  3. NEUROTON [CITICOLINE SODIUM] [Concomitant]
     Indication: Neuropathy peripheral
     Dosage: 1 TABLET AFTER BREAKFAST AND DINNER STARTED FROM 2000, STOPPED AT 2012
     Route: 048
     Dates: start: 2000, end: 2012
  4. NEUROTON [CITICOLINE SODIUM] [Concomitant]
     Indication: Neuropathy peripheral
     Dosage: 1 AMPULE EVERY 3 DAYS , STARTED FROM 2012
     Route: 030
     Dates: start: 2012
  5. INSULIN HUMAN [Suspect]
     Active Substance: INSULIN HUMAN
     Indication: Type 1 diabetes mellitus
     Dosage: 80 IU, QD (50U MORNING , 30U NIGHT)
     Route: 058
     Dates: start: 2000, end: 202208

REACTIONS (2)
  - Blindness [Not Recovered/Not Resolved]
  - Retinal injury [Not Recovered/Not Resolved]
